FAERS Safety Report 7560755-4 (Version None)
Quarter: 2011Q2

REPORT INFORMATION
  Report Type: 
  Country: None (occurrence: None)
  Receive Date: 20110621
  Receipt Date: 20100809
  Transmission Date: 20111010
  Serious: No
  Sender: FDA-Public Use
  Company Number: US-ASTRAZENECA-2010SE36278

PATIENT
  Age: 62 Year
  Sex: Female
  Weight: 86.2 kg

DRUGS (3)
  1. INSULIN [Concomitant]
  2. BYSTOLIC [Concomitant]
  3. ATACAND [Suspect]
     Indication: PROPHYLAXIS
     Route: 048

REACTIONS (4)
  - ASTHENIA [None]
  - BLOOD PRESSURE INCREASED [None]
  - DIZZINESS [None]
  - MUSCLE SPASMS [None]
